FAERS Safety Report 8359825-2 (Version None)
Quarter: 2012Q2

REPORT INFORMATION
  Report Type: 
  Country: None (occurrence: None)
  Receive Date: 20120515
  Receipt Date: 20120509
  Transmission Date: 20120825
  Serious: Yes (Hospitalization, Other)
  Sender: FDA-Public Use
  Company Number: PHEH2005US10681

PATIENT
  Sex: Female
  Weight: 50.34 kg

DRUGS (25)
  1. BENADRYL ^PFIZER WARNER-LAMBERT^ [Concomitant]
  2. POTASSIUM CHLORIDE [Concomitant]
  3. TEMAZEPAM [Concomitant]
  4. MORPHINE SULFATE [Concomitant]
     Indication: PAIN MANAGEMENT
  5. TAGAMET [Concomitant]
  6. CALCIUM WITH VITAMIN D [Concomitant]
  7. SORBITOL 50PC INJ [Concomitant]
  8. AMITRIPTYLINE HCL [Concomitant]
  9. HERCEPTIN [Concomitant]
  10. LAXATIVES [Concomitant]
  11. DECADRON [Concomitant]
  12. URO-MAG [Concomitant]
     Indication: BLOOD MAGNESIUM DECREASED
     Dates: start: 20040501
  13. STRESS FORMULA MULTI B COMPLEX W/C 500 [Concomitant]
  14. STOOL SOFTENER [Concomitant]
  15. NAVELBINE [Concomitant]
  16. TAMOXIFEN CITRATE [Concomitant]
     Route: 048
     Dates: start: 19950101
  17. COUMADIN [Concomitant]
  18. PHENERGAN [Concomitant]
  19. XANAX [Concomitant]
  20. ZOMETA [Suspect]
     Dosage: 4 MG, QMO
     Route: 042
     Dates: start: 20031001, end: 20050315
  21. PROZAC [Concomitant]
  22. TAXOL [Concomitant]
  23. BENTYL [Concomitant]
  24. LOMOTIL [Concomitant]
  25. FEMARA [Concomitant]

REACTIONS (22)
  - SOFT TISSUE INFLAMMATION [None]
  - OSTEOMYELITIS [None]
  - ORAL DISORDER [None]
  - ORTHOSTATIC HYPOTENSION [None]
  - HEADACHE [None]
  - OSTEONECROSIS OF JAW [None]
  - NAUSEA [None]
  - SMALL INTESTINAL OBSTRUCTION [None]
  - ILEUS [None]
  - BLOOD MAGNESIUM DECREASED [None]
  - CHEST PAIN [None]
  - GINGIVAL ERYTHEMA [None]
  - DIZZINESS [None]
  - DIARRHOEA [None]
  - DELIRIUM [None]
  - PAIN IN JAW [None]
  - NEOPLASM MALIGNANT [None]
  - OSTEOPENIA [None]
  - VOMITING [None]
  - MUSCULOSKELETAL PAIN [None]
  - ASTHENIA [None]
  - BACK PAIN [None]
